FAERS Safety Report 23081522 (Version 2)
Quarter: 2023Q4

REPORT INFORMATION
  Report Type: Spontaneous
  Country: JP (occurrence: JP)
  Receive Date: 20231019
  Receipt Date: 20231110
  Transmission Date: 20240109
  Serious: Yes (Hospitalization)
  Sender: FDA-Public Use
  Company Number: JP-BoehringerIngelheim-2023-BI-267816

PATIENT
  Age: 83 Year
  Sex: Female

DRUGS (11)
  1. JARDIANCE [Suspect]
     Active Substance: EMPAGLIFLOZIN
     Indication: Cardiac failure congestive
     Route: 048
  2. JARDIANCE [Suspect]
     Active Substance: EMPAGLIFLOZIN
     Indication: Cardiac failure
  3. CANDESARTAN [Suspect]
     Active Substance: CANDESARTAN
     Indication: Cardiac failure congestive
     Route: 048
  4. PIMOBENDAN [Concomitant]
     Active Substance: PIMOBENDAN
     Indication: Cardiac failure congestive
     Route: 048
  5. FUROSEMIDE [Concomitant]
     Active Substance: FUROSEMIDE
     Indication: Cardiac failure congestive
     Route: 042
  6. AZOSEMIDE [Concomitant]
     Active Substance: AZOSEMIDE
     Indication: Cardiac failure congestive
     Route: 048
  7. AZOSEMIDE [Concomitant]
     Active Substance: AZOSEMIDE
     Route: 048
  8. DOBUTAMINE [Concomitant]
     Active Substance: DOBUTAMINE HYDROCHLORIDE
     Indication: Cardiac failure congestive
     Route: 042
  9. BISOPROLOL [Concomitant]
     Active Substance: BISOPROLOL\BISOPROLOL FUMARATE
     Indication: Cardiac failure congestive
     Route: 048
  10. SPIRONOLACTONE [Concomitant]
     Active Substance: SPIRONOLACTONE
     Indication: Cardiac failure congestive
     Route: 048
  11. ASPIRIN\VONOPRAZAN FUMARATE [Concomitant]
     Active Substance: ASPIRIN\VONOPRAZAN FUMARATE
     Indication: Product used for unknown indication
     Route: 065

REACTIONS (5)
  - Dehydration [Recovered/Resolved]
  - Hypotension [Recovered/Resolved]
  - Pneumonia aspiration [Recovered/Resolved]
  - Renal impairment [Unknown]
  - Hypophagia [Unknown]
